FAERS Safety Report 8358046-7 (Version None)
Quarter: 2012Q2

REPORT INFORMATION
  Report Type: 
  Country: None (occurrence: None)
  Receive Date: 20120514
  Receipt Date: 20120502
  Transmission Date: 20120825
  Serious: Yes (Hospitalization, Other)
  Sender: FDA-Public Use
  Company Number: US-BRISTOL-MYERS SQUIBB COMPANY-16521478

PATIENT
  Age: 63 Year
  Sex: Male
  Weight: 86 kg

DRUGS (2)
  1. VIMPAT [Concomitant]
     Indication: CONVULSION
  2. YERVOY [Suspect]
     Indication: MALIGNANT MELANOMA
     Dosage: 1 TREATMENT
     Dates: start: 20120305

REACTIONS (2)
  - PNEUMONIA [None]
  - METASTASES TO CENTRAL NERVOUS SYSTEM [None]
